FAERS Safety Report 6163136-3 (Version None)
Quarter: 2009Q2

REPORT INFORMATION
  Report Type: 
  Country: None (occurrence: None)
  Receive Date: 20090422
  Receipt Date: 20090414
  Transmission Date: 20091009
  Serious: Yes (Hospitalization)
  Sender: FDA-Public Use
  Company Number: US-JNJFOC-20090404717

PATIENT
  Age: 54 Year
  Sex: Female
  Weight: 66.9 kg

DRUGS (2)
  1. FENTANYL [Suspect]
     Route: 062
  2. FENTANYL [Suspect]
     Indication: PAIN
     Route: 062

REACTIONS (11)
  - ABDOMINAL DISCOMFORT [None]
  - ANOREXIA [None]
  - DYSURIA [None]
  - HEADACHE [None]
  - HYPOPHAGIA [None]
  - METASTATIC MALIGNANT MELANOMA [None]
  - NAUSEA [None]
  - PELVIC PAIN [None]
  - PHOTOPHOBIA [None]
  - PYREXIA [None]
  - VOMITING [None]
